FAERS Safety Report 12215511 (Version 1)
Quarter: 2016Q1

REPORT INFORMATION
  Report Type: Spontaneous
  Country: US (occurrence: US)
  Receive Date: 20160328
  Receipt Date: 20160328
  Transmission Date: 20160526
  Serious: Yes (Other)
  Sender: FDA-Public Use
  Company Number: US-FRI-1000083501

PATIENT
  Age: 72 Year
  Sex: Female
  Weight: 81.6 kg

DRUGS (5)
  1. BYSTOLIC [Suspect]
     Active Substance: NEBIVOLOL HYDROCHLORIDE
     Dosage: 10 MG
     Route: 048
     Dates: start: 201603, end: 20160315
  2. BYSTOLIC [Suspect]
     Active Substance: NEBIVOLOL HYDROCHLORIDE
     Dosage: 10 MG
     Route: 048
     Dates: start: 20160321
  3. BYSTOLIC [Suspect]
     Active Substance: NEBIVOLOL HYDROCHLORIDE
     Indication: HYPERTENSION
     Dosage: 5 MG
     Route: 048
     Dates: end: 201603
  4. POTASSIUM [Concomitant]
     Active Substance: POTASSIUM
     Route: 048
  5. BYSTOLIC [Suspect]
     Active Substance: NEBIVOLOL HYDROCHLORIDE
     Dosage: 5 MG
     Route: 048
     Dates: start: 20160316, end: 20160318

REACTIONS (5)
  - Blood pressure systolic increased [Recovering/Resolving]
  - Ventricular extrasystoles [Recovered/Resolved]
  - Breast cancer [Not Recovered/Not Resolved]
  - Intentional product misuse [Recovered/Resolved]
  - Palpitations [Recovered/Resolved]

NARRATIVE: CASE EVENT DATE: 201601
